FAERS Safety Report 20878955 (Version 1)
Quarter: 2022Q2

REPORT INFORMATION
  Report Type: Spontaneous
  Country: US (occurrence: US)
  Receive Date: 20220526
  Receipt Date: 20220526
  Transmission Date: 20220721
  Serious: No
  Sender: FDA-Public Use
  Company Number: US-RADIUS HEALTH INC.-2021US004882

PATIENT

DRUGS (2)
  1. TYMLOS [Suspect]
     Active Substance: ABALOPARATIDE
     Indication: Neck pain
     Dosage: 80 MICROGRAM, QD
     Route: 058
     Dates: start: 202110
  2. TYMLOS [Suspect]
     Active Substance: ABALOPARATIDE
     Indication: Spinal fracture

REACTIONS (8)
  - Burning sensation [Unknown]
  - Rash erythematous [Unknown]
  - Rash pruritic [Unknown]
  - Injection site erythema [Unknown]
  - Injection site pruritus [Unknown]
  - Injection site pain [Unknown]
  - Hypersensitivity [Unknown]
  - Product use in unapproved indication [Not Recovered/Not Resolved]

NARRATIVE: CASE EVENT DATE: 20211001
